FAERS Safety Report 8582350 (Version 2)
Quarter: 2012Q4

REPORT INFORMATION
  Report Type: Report from Study
  Country: US (occurrence: US)
  Receive Date: 20120528
  Receipt Date: 20121011
  Transmission Date: 20130627
  Serious: Yes (Other)
  Sender: FDA-Public Use
  Company Number: US-ROCHE-1070281

PATIENT
  Age: 65 None
  Sex: Female
  Weight: 78.09 kg

DRUGS (5)
  1. HERCEPTIN [Suspect]
     Indication: BREAST CANCER
     Dosage: dose:unknown
     Route: 048
     Dates: start: 201201
  2. TAXOTERE [Concomitant]
     Indication: BREAST CANCER
     Dosage: dose:unknown
     Route: 042
     Dates: start: 201201, end: 201204
  3. FLAGYL [Concomitant]
     Indication: CLOSTRIDIAL INFECTION
     Dosage: dose:unknown
     Route: 048
     Dates: start: 201203
  4. VANCOMYCIN [Concomitant]
     Indication: CLOSTRIDIAL INFECTION
     Dosage: dose:unknown
     Route: 048
     Dates: start: 201205
  5. HYDROCHLOROTHIAZIDE [Concomitant]
     Indication: OEDEMA
     Dosage: dose:unknown
     Route: 048

REACTIONS (12)
  - Diarrhoea [Not Recovered/Not Resolved]
  - Fatigue [Not Recovered/Not Resolved]
  - Dry mouth [Not Recovered/Not Resolved]
  - Swelling [Recovering/Resolving]
  - Dysgeusia [Unknown]
  - Ejection fraction decreased [Unknown]
  - Oropharyngeal pain [Unknown]
  - Weight increased [Recovering/Resolving]
  - Nasopharyngitis [Unknown]
  - Oedema peripheral [Unknown]
  - Joint swelling [Unknown]
  - Diarrhoea [Unknown]
